FAERS Safety Report 9320051 (Version 1)
Quarter: 2013Q2

REPORT INFORMATION
  Report Type: Spontaneous
  Country: US (occurrence: US)
  Receive Date: 20130530
  Receipt Date: 20130530
  Transmission Date: 20140414
  Serious: No
  Sender: FDA-Public Use
  Company Number: US-PFIZER INC-2013165038

PATIENT
  Age: 64 Year
  Sex: Female
  Weight: 54.42 kg

DRUGS (2)
  1. EFFEXOR XR [Suspect]
     Indication: HOT FLUSH
     Dosage: UNK, 1X/DAY
     Route: 048
     Dates: start: 20130529
  2. EFFEXOR XR [Suspect]
     Indication: MOOD SWINGS

REACTIONS (3)
  - Off label use [Unknown]
  - Nausea [Unknown]
  - Dizziness [Unknown]
